FAERS Safety Report 21164390 (Version 1)
Quarter: 2022Q3

REPORT INFORMATION
  Report Type: Report from Study
  Country: DE (occurrence: DE)
  Receive Date: 20220803
  Receipt Date: 20220803
  Transmission Date: 20221027
  Serious: Yes (Hospitalization, Other)
  Sender: FDA-Public Use
  Company Number: DE-EMA-DD-20190114-hv_a-122819

PATIENT
  Age: 39 Year
  Sex: Male
  Weight: 69 kg

DRUGS (18)
  1. CARBAMAZEPINE [Suspect]
     Active Substance: CARBAMAZEPINE
     Indication: Epilepsy
     Dosage: 1050 MILLIGRAM, QD
     Route: 065
     Dates: start: 1978
  2. CARBAMAZEPINE [Suspect]
     Active Substance: CARBAMAZEPINE
     Dosage: 600 MILLIGRAM, QD
     Route: 065
     Dates: start: 1978, end: 20211112
  3. VALPROIC ACID [Suspect]
     Active Substance: VALPROIC ACID
     Indication: Epilepsy
     Dosage: 1000 MILLIGRAM, Q12H
     Route: 065
     Dates: start: 20011113
  4. VALPROATE SODIUM [Suspect]
     Active Substance: VALPROATE SODIUM
     Indication: Epilepsy
     Dosage: 300 MILLIGRAM, QD
     Route: 065
     Dates: start: 20011113, end: 20011203
  5. VALPROATE SODIUM [Suspect]
     Active Substance: VALPROATE SODIUM
     Dosage: 300 MILLIGRAM, QD
     Route: 065
     Dates: start: 1996, end: 20011112
  6. VALERIAN [Suspect]
     Active Substance: VALERIAN
     Indication: Restlessness
     Dosage: 200 MILLIGRAM, QD
     Route: 065
     Dates: start: 20011201, end: 20011203
  7. METOCLOPRAMIDE HYDROCHLORIDE [Suspect]
     Active Substance: METOCLOPRAMIDE HYDROCHLORIDE
     Indication: Nausea
     Dosage: 20 GTT DROPS, Q8HR
     Route: 065
     Dates: start: 20011128, end: 20011203
  8. RANITIDINE [Suspect]
     Active Substance: RANITIDINE
     Indication: Abdominal distension
     Dosage: 300 MILLIGRAM, QD
     Route: 065
     Dates: end: 20011203
  9. ACETAMINOPHEN [Suspect]
     Active Substance: ACETAMINOPHEN
     Indication: Nasopharyngitis
     Dosage: 500 MILLIGRAM
     Route: 065
     Dates: start: 20011128, end: 20011203
  10. VALERIAN [Suspect]
     Active Substance: VALERIAN
     Indication: Product used for unknown indication
     Dosage: UNK
     Route: 065
  11. PHENYTOIN [Suspect]
     Active Substance: PHENYTOIN
     Indication: Epilepsy
     Dosage: UNK
     Route: 065
     Dates: start: 20011025, end: 2001
  12. PHENYTOIN [Suspect]
     Active Substance: PHENYTOIN
     Dosage: 100 MILLIGRAM
     Route: 065
     Dates: start: 2001, end: 20011203
  13. MINERALS\VITAMINS [Suspect]
     Active Substance: MINERALS\VITAMINS
     Indication: Fatigue
     Dosage: UNK
     Route: 065
     Dates: start: 20011127, end: 20011203
  14. HERBALS\HOMEOPATHICS\MATRICARIA RECUTITA [Suspect]
     Active Substance: HERBALS\HOMEOPATHICS\MATRICARIA RECUTITA
     Indication: Product used for unknown indication
     Dosage: UNK UNK, QD
     Route: 065
     Dates: start: 20011201, end: 20011201
  15. SAGE [Suspect]
     Active Substance: SAGE
     Indication: Nasopharyngitis
     Dosage: UNK
     Route: 065
     Dates: start: 20011201
  16. VALPROATE SODIUM [Concomitant]
     Active Substance: VALPROATE SODIUM
     Indication: Epilepsy
     Dosage: 300 MILLIGRAM, QD
     Dates: start: 1996, end: 1996
  17. VALPROATE SODIUM [Concomitant]
     Active Substance: VALPROATE SODIUM
     Dosage: 2000 MILLIGRAM, QD
     Dates: end: 20011113
  18. VALPROATE SODIUM [Concomitant]
     Active Substance: VALPROATE SODIUM
     Dosage: 1000 MILLIGRAM, QD
     Dates: start: 1996, end: 20011112

REACTIONS (18)
  - Restlessness [Unknown]
  - Epilepsy [Unknown]
  - Nasopharyngitis [Unknown]
  - Alanine aminotransferase increased [Unknown]
  - Liver function test abnormal [Unknown]
  - Gamma-glutamyltransferase increased [Unknown]
  - Rash macular [Recovering/Resolving]
  - Macule [Recovering/Resolving]
  - Mucosal erosion [Recovering/Resolving]
  - Dysphagia [Unknown]
  - Aspartate aminotransferase increased [Unknown]
  - Swelling face [Recovering/Resolving]
  - Stevens-Johnson syndrome [Recovering/Resolving]
  - Nausea [Unknown]
  - Pyrexia [Recovering/Resolving]
  - Fatigue [Unknown]
  - Erythema [Recovering/Resolving]
  - Pruritus [Recovering/Resolving]

NARRATIVE: CASE EVENT DATE: 20011127
